FAERS Safety Report 13626310 (Version 1)
Quarter: 2017Q2

REPORT INFORMATION
  Report Type: Spontaneous
  Country: CN (occurrence: CN)
  Receive Date: 20170608
  Receipt Date: 20170608
  Transmission Date: 20170830
  Serious: Yes (Death, Other)
  Sender: FDA-Public Use
  Company Number: CN-GLAXOSMITHKLINE-CN2017GSK083966

PATIENT
  Age: 76 Year
  Sex: Male

DRUGS (8)
  1. LAMOTRIGINE. [Suspect]
     Active Substance: LAMOTRIGINE
     Indication: EPILEPSY
     Dosage: 50 MG, UNK
     Route: 048
  2. LAMOTRIGINE. [Suspect]
     Active Substance: LAMOTRIGINE
     Dosage: 25 MG, QOD (FIRST 2 WEEKS)
     Route: 048
  3. LAMOTRIGINE. [Suspect]
     Active Substance: LAMOTRIGINE
     Dosage: 25 MG, QD (FOR THE FOLLOWING 2 WEEKS)
     Route: 048
  4. VALPROATE SODIUM. [Suspect]
     Active Substance: VALPROATE SODIUM
     Dosage: 0.5 G, QD (FOR THE FIRST 2 WEEKS)
     Route: 048
  5. LAMOTRIGINE. [Suspect]
     Active Substance: LAMOTRIGINE
     Dosage: 25 MG, BID (FROM WEEK 5)
     Route: 048
  6. VALPROATE SODIUM. [Suspect]
     Active Substance: VALPROATE SODIUM
     Indication: EPILEPSY
     Dosage: 0.5 G, UNK
     Route: 048
  7. VALPROATE SODIUM. [Suspect]
     Active Substance: VALPROATE SODIUM
     Dosage: 0.5 G, QD (FOR THE FOLLOWING 2 WEEKS)
     Route: 048
  8. VALPROATE SODIUM. [Suspect]
     Active Substance: VALPROATE SODIUM
     Dosage: 0.5 G, QD (FROM WEEK 5)
     Route: 048

REACTIONS (41)
  - Skin erosion [Unknown]
  - Pyrexia [Unknown]
  - Dyskinesia [Unknown]
  - Diarrhoea [Unknown]
  - Multiple organ dysfunction syndrome [Fatal]
  - Slow response to stimuli [Unknown]
  - Muscle twitching [Unknown]
  - Anaemia [Unknown]
  - Mouth ulceration [Unknown]
  - Altered state of consciousness [Unknown]
  - Hypokalaemia [Unknown]
  - Hypopnoea [Unknown]
  - Delirium [Unknown]
  - Blister [Unknown]
  - Swelling [Unknown]
  - Muscular weakness [Unknown]
  - Tenderness [Unknown]
  - Conjunctivitis [Unknown]
  - Urinary incontinence [Unknown]
  - Condition aggravated [Unknown]
  - Somnolence [Unknown]
  - Eye discharge [Unknown]
  - Diabetes mellitus [Unknown]
  - Hypoglycaemia [Unknown]
  - Pallor [Unknown]
  - Infection [Fatal]
  - Toxic epidermal necrolysis [Unknown]
  - Erythema [Unknown]
  - Scab [Unknown]
  - Skin exfoliation [Unknown]
  - Lip discolouration [Unknown]
  - Genital erythema [Unknown]
  - Hyponatraemia [Unknown]
  - Hypochloraemia [Unknown]
  - Pain [Unknown]
  - Hypovolaemic shock [Fatal]
  - Hypoproteinaemia [Unknown]
  - Hypocalcaemia [Unknown]
  - Hypersensitivity [Unknown]
  - Respiratory rate increased [Unknown]
  - Coma [Unknown]

NARRATIVE: CASE EVENT DATE: 20150303
